FAERS Safety Report 4770832-9 (Version None)
Quarter: 2005Q3

REPORT INFORMATION
  Report Type: 
  Country: None (occurrence: None)
  Receive Date: 20050915
  Receipt Date: 20041220
  Transmission Date: 20060218
  Serious: Yes (Other)
  Sender: FDA-Public Use
  Company Number: FR-GLAXOSMITHKLINE-B0363106A

PATIENT
  Age: 29 Year
  Sex: Female
  Weight: 60 kg

DRUGS (1)
  1. ZELITREX [Suspect]
     Indication: VARICELLA
     Dosage: 1G THREE TIMES PER DAY
     Route: 048
     Dates: start: 20041211, end: 20041219

REACTIONS (3)
  - ABORTION INDUCED [None]
  - BLIGHTED OVUM [None]
  - DRUG EXPOSURE DURING PREGNANCY [None]
